FAERS Safety Report 13515575 (Version 2)
Quarter: 2017Q2

REPORT INFORMATION
  Report Type: Spontaneous
  Country: US (occurrence: US)
  Receive Date: 20170504
  Receipt Date: 20170607
  Transmission Date: 20170830
  Serious: No
  Sender: FDA-Public Use
  Company Number: US-ACTELION-A-NJ2017-153314

PATIENT
  Age: 50 Year
  Sex: Female

DRUGS (4)
  1. UPTRAVI [Suspect]
     Active Substance: SELEXIPAG
     Dosage: 1400 MCG, BID
     Route: 048
  2. AMBRISENTAN [Suspect]
     Active Substance: AMBRISENTAN
     Indication: PRODUCT USED FOR UNKNOWN INDICATION
     Dosage: 10 MG, QD
     Route: 065
  3. ADCIRCA [Concomitant]
     Active Substance: TADALAFIL
  4. UPTRAVI [Suspect]
     Active Substance: SELEXIPAG
     Indication: PRODUCT USED FOR UNKNOWN INDICATION
     Route: 048

REACTIONS (14)
  - Unevaluable event [Unknown]
  - Pain in jaw [Unknown]
  - Decreased appetite [Unknown]
  - Constipation [Unknown]
  - Dyspepsia [Unknown]
  - Pain [Unknown]
  - Renal function test abnormal [Unknown]
  - Back pain [Unknown]
  - Muscle spasms [Unknown]
  - Weight decreased [Unknown]
  - Abdominal pain upper [Unknown]
  - Fatigue [Unknown]
  - Drug dose omission [Unknown]
  - Diarrhoea [Unknown]
